FAERS Safety Report 6101915-9 (Version None)
Quarter: 2009Q1

REPORT INFORMATION
  Report Type: 
  Country: None (occurrence: None)
  Receive Date: 20090304
  Receipt Date: 20090223
  Transmission Date: 20090719
  Serious: Yes (Other)
  Sender: FDA-Public Use
  Company Number: GB-PFIZER INC-2009175218

PATIENT

DRUGS (1)
  1. MEDRONE [Suspect]
     Dosage: 4 MG, 1X/DAY

REACTIONS (1)
  - RASH [None]
